FAERS Safety Report 7613467 (Version 3)
Quarter: 2012Q4

REPORT INFORMATION
  Report Type: 
  Country: US (occurrence: US)
  Receive Date: 20100930
  Receipt Date: 20121116
  Transmission Date: 20130627
  Serious: Yes (Death, Other)
  Sender: FDA-Public Use
  Company Number: US-ROCHE-729622

PATIENT

DRUGS (9)
  1. BEVACIZUMAB [Suspect]
     Indication: GENITAL NEOPLASM MALIGNANT FEMALE
     Dosage: DAY 1 OF EACH 21 CYCLE, Dose level 1-3
     Route: 042
  2. BEVACIZUMAB [Suspect]
     Dosage: DAY 1 OF EACH 21 CYCLE, Dose level 4
     Route: 042
  3. BEVACIZUMAB [Suspect]
     Dosage: DAY 1 OF EACH 21 CYCLE, Dose level 5-7
     Route: 042
  4. DOXORUBICIN [Suspect]
     Indication: GENITAL NEOPLASM MALIGNANT FEMALE
     Dosage: DAY 1 OF EACH 21 DAY CYCLE, Dose level 1
     Route: 042
  5. DOXORUBICIN [Suspect]
     Dosage: Dose level 2-5
     Route: 042
  6. DOXORUBICIN [Suspect]
     Dosage: DAY 1 OF EACH 21 DAY CYCLE, Dose level 6
     Route: 042
  7. DOXORUBICIN [Suspect]
     Dosage: DAY 1 OF EACH 21 DAY CYCLE, Dose level 7
     Route: 042
  8. TEMSIROLIMUS [Suspect]
     Indication: GENITAL NEOPLASM MALIGNANT FEMALE
     Dosage: DAY 1, 8 AND 15 DAY CYCLE, Dose level 1-2
     Route: 042
  9. TEMSIROLIMUS [Suspect]
     Dosage: Dose level 3-7.
     Route: 042

REACTIONS (15)
  - Intestinal perforation [Fatal]
  - Fistula [Unknown]
  - Thrombocytopenia [Unknown]
  - Mucosal inflammation [Unknown]
  - Fatigue [Unknown]
  - Urogenital fistula [Unknown]
  - Cardiac disorder [Unknown]
  - Neutropenia [Unknown]
  - Anaemia [Unknown]
  - Palmar-plantar erythrodysaesthesia syndrome [Unknown]
  - Headache [Unknown]
  - Hypertension [Unknown]
  - Blood creatinine increased [Unknown]
  - Hypercholesterolaemia [Unknown]
  - Hypertriglyceridaemia [Unknown]
